FAERS Safety Report 6376832-X (Version None)
Quarter: 2009Q3

REPORT INFORMATION
  Report Type: 
  Country: None (occurrence: None)
  Receive Date: 20090921
  Receipt Date: 20090910
  Transmission Date: 20100115
  Serious: Yes (Other)
  Sender: FDA-Public Use
  Company Number: GXKR2009SG10110

PATIENT
  Age: 77 Year
  Sex: Female

DRUGS (4)
  1. ISONIAZID [Suspect]
     Indication: LYMPH NODE TUBERCULOSIS
  2. ETHAMBUTOL HYDROCHLORIDE [Suspect]
     Indication: LYMPH NODE TUBERCULOSIS
  3. RIFAMPICIN [Suspect]
     Indication: LYMPH NODE TUBERCULOSIS
  4. PYRAZINAMIDE [Suspect]
     Indication: LYMPH NODE TUBERCULOSIS

REACTIONS (7)
  - ANTERIOR CHAMBER CELL [None]
  - CHORIORETINITIS [None]
  - CONDITION AGGRAVATED [None]
  - JARISCH-HERXHEIMER REACTION [None]
  - RETINAL SCAR [None]
  - VITREOUS DISORDER [None]
  - VITRITIS [None]
